FAERS Safety Report 8472234-0 (Version None)
Quarter: 2012Q2

REPORT INFORMATION
  Report Type: 
  Country: None (occurrence: None)
  Receive Date: 20120627
  Receipt Date: 20120621
  Transmission Date: 20120825
  Serious: Yes (Other)
  Sender: FDA-Public Use
  Company Number: US-FRI-1000028733

PATIENT
  Sex: Male
  Weight: 69.54 kg

DRUGS (15)
  1. VFEND [Suspect]
     Indication: ASPERGILLOSIS
     Dosage: 400 MG
     Route: 048
     Dates: start: 20100101
  2. VITAMIN B-12 [Concomitant]
     Indication: VITAMIN B12 DEFICIENCY
     Dosage: 1000 UG
     Route: 048
  3. POTASSIUM CHLORIDE [Concomitant]
     Indication: SUPPLEMENTATION THERAPY
     Dosage: 20 MEQ
     Route: 048
  4. MUCINEX [Concomitant]
     Indication: ILL-DEFINED DISORDER
     Dosage: 1200 MG
  5. VITAMIN D [Concomitant]
     Dosage: 2000 IU
     Route: 048
  6. DALIRESP [Suspect]
     Indication: CHRONIC OBSTRUCTIVE PULMONARY DISEASE
     Dosage: 500 MCG
     Route: 048
     Dates: start: 20120106, end: 20120113
  7. EYE VITAMIN [Concomitant]
  8. DALIRESP [Suspect]
     Dosage: 500 MCG
     Route: 048
     Dates: start: 20120117, end: 20120129
  9. ASPIRIN [Concomitant]
     Indication: CEREBROVASCULAR ACCIDENT
     Dosage: 325 MG
     Route: 048
  10. ADVAIR DISKUS 100/50 [Concomitant]
     Indication: CHRONIC OBSTRUCTIVE PULMONARY DISEASE
     Dosage: 1000 MG
     Route: 045
  11. LASIX [Concomitant]
     Indication: OEDEMA PERIPHERAL
     Dosage: 20 MG
     Route: 048
  12. AVAPRO [Concomitant]
     Indication: HYPERTENSION
     Dosage: AS NEEDED
  13. MULTI-VITAMINS [Concomitant]
  14. DALIRESP [Suspect]
     Dosage: 500 MCG
     Route: 048
     Dates: start: 20120117, end: 20120203
  15. ATROVENT [Concomitant]
     Indication: CHRONIC OBSTRUCTIVE PULMONARY DISEASE
     Route: 045

REACTIONS (13)
  - DECREASED APPETITE [None]
  - GAIT DISTURBANCE [None]
  - FREQUENT BOWEL MOVEMENTS [None]
  - SLUGGISHNESS [None]
  - THIRST DECREASED [None]
  - INSOMNIA [None]
  - MUSCULAR WEAKNESS [None]
  - DIARRHOEA [None]
  - COGNITIVE DISORDER [None]
  - MENTAL STATUS CHANGES [None]
  - SUICIDAL IDEATION [None]
  - LETHARGY [None]
  - IRRITABILITY [None]
